FAERS Safety Report 6037468-3 (Version None)
Quarter: 2009Q1

REPORT INFORMATION
  Report Type: 
  Country: None (occurrence: None)
  Receive Date: 20090114
  Receipt Date: 20090108
  Transmission Date: 20090719
  Serious: Yes (Other)
  Sender: FDA-Public Use
  Company Number: JP-PFIZER INC-2008150505

PATIENT

DRUGS (1)
  1. LINEZOLID [Suspect]
     Indication: ABSCESS

REACTIONS (1)
  - SIDEROBLASTIC ANAEMIA [None]
